FAERS Safety Report 13047355 (Version 1)
Quarter: 2016Q4

REPORT INFORMATION
  Report Type: Spontaneous
  Country: US (occurrence: US)
  Receive Date: 20161220
  Receipt Date: 20161220
  Transmission Date: 20170207
  Serious: Yes (Other)
  Sender: FDA-Public Use
  Company Number: US-CELGENEUS-USA-2016124713

PATIENT
  Age: 72 Year
  Sex: Female

DRUGS (4)
  1. THALOMID [Suspect]
     Active Substance: THALIDOMIDE
     Dosage: 50MG
     Route: 048
     Dates: start: 20130810
  2. THALOMID [Suspect]
     Active Substance: THALIDOMIDE
     Dosage: 50 - 200MG
     Route: 048
     Dates: start: 200403
  3. THALOMID [Suspect]
     Active Substance: THALIDOMIDE
     Indication: PLASMA CELL MYELOMA IN REMISSION
     Dosage: 200MG
     Route: 048
     Dates: start: 200210
  4. THALOMID [Suspect]
     Active Substance: THALIDOMIDE
     Dosage: 100MG
     Route: 048
     Dates: start: 201612

REACTIONS (1)
  - Nasopharyngitis [Unknown]

NARRATIVE: CASE EVENT DATE: 20161215
